FAERS Safety Report 6271772-9 (Version None)
Quarter: 2009Q3

REPORT INFORMATION
  Report Type: 
  Country: None (occurrence: None)
  Receive Date: 20090717
  Receipt Date: 20070410
  Transmission Date: 20100115
  Serious: Yes (Other)
  Sender: FDA-Public Use
  Company Number: US-ASTRAZENECA-2006UW23502

PATIENT
  Age: 35 Year
  Sex: Male
  Weight: 83.9 kg

DRUGS (30)
  1. SEROQUEL [Suspect]
     Indication: SCHIZOPHRENIA
     Dosage: 25 - 1200 MG
     Route: 048
     Dates: start: 20020101
  2. SEROQUEL [Suspect]
     Indication: SCHIZOAFFECTIVE DISORDER
     Dosage: 25 - 1200 MG
     Route: 048
     Dates: start: 20020101
  3. SEROQUEL [Suspect]
     Route: 048
     Dates: start: 20020416
  4. SEROQUEL [Suspect]
     Route: 048
     Dates: start: 20020416
  5. ZYPREXA [Concomitant]
     Dates: start: 20010611, end: 20020501
  6. ENBREL [Concomitant]
  7. LIPITOR [Concomitant]
  8. OMNICEF [Concomitant]
  9. CIPRODEX [Concomitant]
  10. HYDROCODONE [Concomitant]
  11. ZETIA [Concomitant]
  12. ETODOLAC [Concomitant]
  13. UMECTA [Concomitant]
  14. LEVAQUIN [Concomitant]
  15. JANUVIA [Concomitant]
  16. GLUCOPHAGE [Concomitant]
  17. BYETTA [Concomitant]
  18. AZITHROMYCIN [Concomitant]
  19. LORAZEPAM [Concomitant]
  20. LEXAPRO [Concomitant]
  21. WELLBUTRIN [Concomitant]
  22. DEPAKOTE [Concomitant]
  23. CELEXA [Concomitant]
  24. ENOXAPARIN SODIUM [Concomitant]
  25. AMEVIVE [Concomitant]
  26. ROCEPHIN [Concomitant]
  27. CLOBEX [Concomitant]
  28. DOVONEX [Concomitant]
  29. NEURONTIN [Concomitant]
  30. PROTOPIC [Concomitant]

REACTIONS (6)
  - BLOOD CHOLESTEROL INCREASED [None]
  - CHEST PAIN [None]
  - DIABETES MELLITUS [None]
  - MUSCLE SPASMS [None]
  - MYALGIA [None]
  - TRANSIENT ISCHAEMIC ATTACK [None]
